FAERS Safety Report 7995810-8 (Version None)
Quarter: 2011Q4

REPORT INFORMATION
  Report Type: 
  Country: None (occurrence: None)
  Receive Date: 20111216
  Receipt Date: 20111214
  Transmission Date: 20120403
  Serious: Yes (Hospitalization, Other)
  Sender: FDA-Public Use
  Company Number: 2011SP025675

PATIENT
  Age: 47 Year
  Sex: Female
  Weight: 77.1115 kg

DRUGS (3)
  1. NUVARING [Suspect]
     Indication: CONTRACEPTION
     Dates: start: 20081001, end: 20090619
  2. NUVARING [Suspect]
     Indication: MENSTRUAL DISORDER
     Dates: start: 20081001, end: 20090619
  3. NUVARING [Suspect]
     Indication: DYSFUNCTIONAL UTERINE BLEEDING
     Dates: start: 20081001, end: 20090619

REACTIONS (19)
  - RESPIRATORY FAILURE [None]
  - COSTOCHONDRITIS [None]
  - MENTAL DISORDER [None]
  - EMOTIONAL DISORDER [None]
  - CARPAL TUNNEL SYNDROME [None]
  - IMPAIRED WORK ABILITY [None]
  - MENSTRUATION IRREGULAR [None]
  - NEUROPATHY PERIPHERAL [None]
  - PULMONARY EMBOLISM [None]
  - PAIN [None]
  - PULMONARY INFARCTION [None]
  - COGNITIVE DISORDER [None]
  - DERMOID CYST [None]
  - RESPIRATORY ALKALOSIS [None]
  - DEEP VEIN THROMBOSIS [None]
  - ASTHMA [None]
  - FIBROMYALGIA [None]
  - GRANULOMA [None]
  - METRORRHAGIA [None]
